FAERS Safety Report 17964141 (Version 1)
Quarter: 2020Q2

REPORT INFORMATION
  Report Type: Spontaneous
  Country: CN (occurrence: CN)
  Receive Date: 20200630
  Receipt Date: 20200630
  Transmission Date: 20200714
  Serious: Yes (Other)
  Sender: FDA-Public Use
  Company Number: CN-PFIZER INC-2020248759

PATIENT
  Age: 85 Year
  Sex: Female
  Weight: 45 kg

DRUGS (1)
  1. CELEBREX [Suspect]
     Active Substance: CELECOXIB
     Indication: PAIN IN EXTREMITY
     Dosage: 0.2 G, 1X/DAY
     Route: 048
     Dates: start: 20200518, end: 20200519

REACTIONS (1)
  - Senile pruritus [Recovering/Resolving]

NARRATIVE: CASE EVENT DATE: 20200519
